FAERS Safety Report 10201163 (Version 1)
Quarter: 2014Q2

REPORT INFORMATION
  Report Type: Spontaneous
  Country: US (occurrence: US)
  Receive Date: 20140528
  Receipt Date: 20140528
  Transmission Date: 20141212
  Serious: No
  Sender: FDA-Public Use
  Company Number: -MYLANLABS-2014S1004678

PATIENT
  Sex: Female

DRUGS (1)
  1. MONTELUKAST SODIUM TABLETS [Suspect]
     Indication: MULTIPLE ALLERGIES

REACTIONS (2)
  - Drug ineffective [Not Recovered/Not Resolved]
  - Multiple allergies [Not Recovered/Not Resolved]
